FAERS Safety Report 10683624 (Version 1)
Quarter: 2014Q4

REPORT INFORMATION
  Report Type: Spontaneous
  Country: US (occurrence: US)
  Receive Date: 20141230
  Receipt Date: 20141230
  Transmission Date: 20150529
  Serious: No
  Sender: FDA-Public Use
  Company Number: US-009507513-1412USA010137

PATIENT
  Age: 18 Year
  Sex: Female
  Weight: 71.66 kg

DRUGS (1)
  1. NEXPLANON [Suspect]
     Active Substance: ETONOGESTREL
     Indication: CONTRACEPTION
     Dosage: 68 MG, UNK
     Route: 059
     Dates: start: 20130711

REACTIONS (7)
  - Peripheral coldness [Unknown]
  - Headache [Unknown]
  - Dizziness [Unknown]
  - Muscular weakness [Unknown]
  - Paraesthesia [Unknown]
  - Menorrhagia [Unknown]
  - Device breakage [Unknown]

NARRATIVE: CASE EVENT DATE: 20141212
